FAERS Safety Report 8337673-7 (Version None)
Quarter: 2012Q2

REPORT INFORMATION
  Report Type: 
  Country: None (occurrence: None)
  Receive Date: 20120504
  Receipt Date: 20120504
  Transmission Date: 20120825
  Serious: Yes (Other)
  Sender: FDA-Public Use
  Company Number: None

PATIENT
  Age: 50 Year
  Sex: Male

DRUGS (2)
  1. LORAZEPAM [Suspect]
     Indication: ANXIETY
     Dates: start: 20120426, end: 20120502
  2. LORAZEPAM [Suspect]
     Indication: ALCOHOL DETOXIFICATION
     Dates: start: 20120426, end: 20120502

REACTIONS (4)
  - MEMORY IMPAIRMENT [None]
  - ABNORMAL BEHAVIOUR [None]
  - AGITATION [None]
  - RESTLESSNESS [None]
